FAERS Safety Report 9199724 (Version 2)
Quarter: 2013Q3

REPORT INFORMATION
  Report Type: Spontaneous
  Country: FR (occurrence: FR)
  Receive Date: 20130329
  Receipt Date: 20130729
  Transmission Date: 20140515
  Serious: Yes (Hospitalization)
  Sender: FDA-Public Use
  Company Number: FR-PFIZER INC-2013097177

PATIENT
  Age: 85 Year
  Sex: Female

DRUGS (18)
  1. INSPRA [Suspect]
     Dosage: 25 MG, 1X/DAY
     Route: 048
     Dates: start: 20130226, end: 20130227
  2. TRIATEC [Interacting]
     Dosage: 5 MG, 1X/DAY
     Route: 048
     Dates: start: 20130221, end: 20130227
  3. FUROSEMIDE RENAUDIN [Interacting]
     Dosage: 250 MG PER DAY
     Route: 042
     Dates: start: 20130219, end: 20130221
  4. FUROSEMIDE RENAUDIN [Interacting]
     Dosage: 40 MG PER DAY
     Route: 042
     Dates: start: 20130222, end: 20130227
  5. LASILIX [Interacting]
     Dosage: 40 MG, DAILY
     Dates: start: 20130223, end: 20130227
  6. KARDEGIC [Concomitant]
     Dosage: UNK
  7. PLAVIX [Concomitant]
     Dosage: UNK
  8. AMLOR [Concomitant]
     Dosage: UNK
  9. ATENOLOL [Concomitant]
     Dosage: UNK
  10. ENALAPRIL MALEATE [Concomitant]
     Dosage: UNK
  11. TAHOR [Concomitant]
     Dosage: UNK
  12. TERBUTALINE SULFATE [Concomitant]
     Dosage: UNK
  13. IPRATROPIUM BROMIDE [Concomitant]
     Dosage: UNK
  14. AUGMENTIN [Concomitant]
     Dosage: UNK
  15. CIPROFLOXACIN [Concomitant]
     Dosage: UNK
  16. LOVENOX [Concomitant]
  17. CARDENSIEL [Concomitant]
     Dosage: UNK
     Dates: start: 20130221
  18. CORDARONE [Concomitant]
     Dosage: UNK
     Dates: start: 20130221

REACTIONS (2)
  - Drug interaction [Recovering/Resolving]
  - Renal failure acute [Recovering/Resolving]
